FAERS Safety Report 5710719-8 (Version None)
Quarter: 2008Q2

REPORT INFORMATION
  Report Type: 
  Country: None (occurrence: None)
  Receive Date: 20080415
  Receipt Date: 20080403
  Transmission Date: 20081010
  Serious: Yes (Hospitalization)
  Sender: FDA-Public Use
  Company Number: GXKR2008TW03313

PATIENT
  Age: 48 Year
  Sex: Female

DRUGS (1)
  1. TRICHLORMETHIAZIDE (NGX)(TRICHLORMETHIAZIDE) UNKNOWN [Suspect]
     Indication: CALCULUS URINARY
     Dosage: 1 MG/DAY

REACTIONS (7)
  - ABDOMINAL DISTENSION [None]
  - ABDOMINAL PAIN [None]
  - GASTROINTESTINAL SOUNDS ABNORMAL [None]
  - HYPERCALCAEMIA [None]
  - ILEUS [None]
  - INTESTINAL OBSTRUCTION [None]
  - NAUSEA [None]
